FAERS Safety Report 5469284-5 (Version None)
Quarter: 2007Q3

REPORT INFORMATION
  Report Type: 
  Country: None (occurrence: None)
  Receive Date: 20070926
  Receipt Date: 20070926
  Transmission Date: 20080115
  Serious: Yes (Other)
  Sender: FDA-Public Use
  Company Number: None

PATIENT
  Age: 73 Year
  Sex: Male
  Weight: 77.4 kg

DRUGS (1)
  1. BUMINATE 5% [Suspect]
     Dosage: ~70 MLS IV
     Route: 042
     Dates: start: 20070917, end: 20070917

REACTIONS (6)
  - BODY TEMPERATURE INCREASED [None]
  - CHILLS [None]
  - HEART RATE INCREASED [None]
  - INFUSION RELATED REACTION [None]
  - PHARMACEUTICAL PRODUCT COMPLAINT [None]
  - THERAPEUTIC PRODUCT CONTAMINATION [None]
